FAERS Safety Report 12210917 (Version 2)
Quarter: 2016Q2

REPORT INFORMATION
  Report Type: Spontaneous
  Country: US (occurrence: US)
  Receive Date: 20160325
  Receipt Date: 20160413
  Transmission Date: 20160815
  Serious: Yes (Other)
  Sender: FDA-Public Use
  Company Number: US-MDT-ADR-2016-00561

PATIENT
  Age: 39 Year
  Sex: Female

DRUGS (7)
  1. COMPOUNDED BUPIVACAINE [Suspect]
     Active Substance: BUPIVACAINE
     Dosage: 7.647 MG/DAY
     Route: 037
     Dates: start: 2013
  2. DILAUDID [Suspect]
     Active Substance: HYDROMORPHONE HYDROCHLORIDE
     Dosage: 4 MG TAB EVERY EIGHT HOUR
     Route: 048
  3. LYRICA [Suspect]
     Active Substance: PREGABALIN
     Dosage: 300 MG CAP EVERY 12 HOUR
     Route: 048
  4. TIZANIDINE. [Suspect]
     Active Substance: TIZANIDINE
     Dosage: 4 MG
  5. FENTANYL. [Suspect]
     Active Substance: FENTANYL
     Dosage: 955.9 MCG/DAY
     Route: 037
     Dates: start: 2013
  6. STEROID [Suspect]
     Active Substance: UNSPECIFIED INGREDIENT
  7. BACLOFEN. [Suspect]
     Active Substance: BACLOFEN
     Dosage: 95.59 MCG/DAY
     Route: 037
     Dates: start: 2014

REACTIONS (3)
  - Neuropathy peripheral [Recovering/Resolving]
  - Pain [Recovering/Resolving]
  - Device malfunction [None]
